FAERS Safety Report 23703619 (Version 1)
Quarter: 2024Q2

REPORT INFORMATION
  Report Type: Spontaneous
  Country: US (occurrence: None)
  Receive Date: 20240403
  Receipt Date: 20240403
  Transmission Date: 20240716
  Serious: No
  Sender: FDA-Public Use
  Company Number: None

PATIENT
  Age: 77 Year
  Sex: Male
  Weight: 103.5 kg

DRUGS (1)
  1. EZETIMIBE [Suspect]
     Active Substance: EZETIMIBE
     Indication: Low density lipoprotein increased
     Dosage: 1 TABLET AT BEDTIME ORAL
     Route: 048
     Dates: start: 20240122, end: 20240310

REACTIONS (2)
  - Swelling of eyelid [None]
  - Urticaria [None]

NARRATIVE: CASE EVENT DATE: 20240219
